FAERS Safety Report 9355365 (Version 1)
Quarter: 2013Q2

REPORT INFORMATION
  Report Type: Spontaneous
  Country: US (occurrence: US)
  Receive Date: 20130619
  Receipt Date: 20130619
  Transmission Date: 20140414
  Serious: Yes (Hospitalization)
  Sender: FDA-Public Use
  Company Number: US-009507513-1306USA007838

PATIENT
  Sex: Male

DRUGS (2)
  1. SAPHRIS [Suspect]
     Dosage: 10 MG, ONCE DAILY
     Route: 060
  2. COGENTIN [Concomitant]

REACTIONS (2)
  - Dystonia [Recovered/Resolved]
  - Inappropriate schedule of drug administration [Unknown]
